FAERS Safety Report 11525931 (Version 2)
Quarter: 2015Q4

REPORT INFORMATION
  Report Type: Spontaneous
  Country: US (occurrence: US)
  Receive Date: 20150918
  Receipt Date: 20151014
  Transmission Date: 20160304
  Serious: No
  Sender: FDA-Public Use
  Company Number: US-GLAXOSMITHKLINE-US2015131836

PATIENT
  Age: 75 Year
  Sex: Female

DRUGS (8)
  1. ADVAIR DISKUS [Suspect]
     Active Substance: FLUTICASONE PROPIONATE\SALMETEROL XINAFOATE
     Indication: ASTHMA
     Dosage: 1 PUFF(S), BID
     Dates: start: 20141101
  2. BIOTENE ORAL RINSE MOUTH WASH [Suspect]
     Active Substance: CETYLPYRIDINIUM CHLORIDE
  3. LITHIUM. [Concomitant]
     Active Substance: LITHIUM
  4. ADVAIR DISKUS [Suspect]
     Active Substance: FLUTICASONE PROPIONATE\SALMETEROL XINAFOATE
     Dosage: UNK
  5. BIOTENE MOISTURIZING MOUTH SPRAY OROMUCOSAL SPRAY [Suspect]
     Active Substance: CETYLPYRIDINIUM CHLORIDE
  6. BREO ELLIPTA [Suspect]
     Active Substance: FLUTICASONE FUROATE\VILANTEROL TRIFENATATE
     Indication: ASTHMA
  7. ADVAIR DISKUS [Suspect]
     Active Substance: FLUTICASONE PROPIONATE\SALMETEROL XINAFOATE
     Dosage: UNK
  8. FLUORIDE [Suspect]
     Active Substance: SODIUM FLUORIDE

REACTIONS (8)
  - Frustration [Unknown]
  - Oral disorder [Unknown]
  - Tooth disorder [Unknown]
  - Drug ineffective [Unknown]
  - Device ineffective [Unknown]
  - Oral discomfort [Recovered/Resolved]
  - Anxiety [Unknown]
  - Drug ineffective for unapproved indication [Unknown]

NARRATIVE: CASE EVENT DATE: 201501
